FAERS Safety Report 9293437 (Version 2)
Quarter: 2013Q2

REPORT INFORMATION
  Report Type: Spontaneous
  Country: US (occurrence: US)
  Receive Date: 20130516
  Receipt Date: 20130604
  Transmission Date: 20140414
  Serious: Yes (Death)
  Sender: FDA-Public Use
  Company Number: US-GLAXOSMITHKLINE-A0906212A

PATIENT
  Age: 44 Year
  Sex: Male
  Weight: 122.5 kg

DRUGS (43)
  1. FLOLAN [Suspect]
     Indication: PULMONARY ARTERIAL HYPERTENSION
     Dosage: 56NGKM CONTINUOUS
     Route: 042
     Dates: start: 20021223, end: 20130508
  2. FLOLAN DILUENT [Suspect]
     Indication: PULMONARY ARTERIAL HYPERTENSION
     Route: 042
     Dates: start: 20021223
  3. PHENERGAN [Concomitant]
     Dosage: 24MG AS REQUIRED
  4. CALCIFEROL [Concomitant]
     Dosage: 1.25MG WEEKLY
  5. TOPROL XL [Concomitant]
     Dosage: 75MG TWICE PER DAY
  6. TRACLEER [Concomitant]
     Indication: PULMONARY HYPERTENSION
     Dosage: 125MG TWICE PER DAY
  7. HYDRALAZINE [Concomitant]
     Dosage: 10MG TWICE PER DAY
  8. BUMEX [Concomitant]
     Dosage: 2MG TWICE PER DAY
  9. ZAROXOLYN [Concomitant]
     Dosage: 2.5MG PER DAY
  10. PREDNISONE [Concomitant]
     Dosage: 15MG PER DAY
  11. TORSEMIDE [Concomitant]
     Dosage: 10MG TWICE PER DAY
  12. MULTAQ [Concomitant]
     Dosage: 400MG TWICE PER DAY
  13. ALBUTEROL [Concomitant]
     Route: 055
  14. ALLEGRA [Concomitant]
     Dosage: 180MG PER DAY
  15. REQUIP [Concomitant]
     Dosage: 1MG PER DAY
     Route: 048
  16. NAPROXEN [Concomitant]
     Dosage: 375MG PER DAY
  17. IRON [Concomitant]
     Dosage: 325MG PER DAY
  18. LASIX [Concomitant]
     Dosage: 60MG PER DAY
  19. NASONEX [Concomitant]
     Dosage: 2SPR PER DAY
     Route: 045
  20. COUMADIN [Concomitant]
  21. ADVAIR [Concomitant]
  22. FLUOXETINE [Concomitant]
     Dosage: 10MG IN THE MORNING
  23. KDUR [Concomitant]
     Dosage: 20MCG PER DAY
  24. RANITIDINE [Concomitant]
     Dosage: 150MG TWICE PER DAY
  25. MULTIVITAMIN [Concomitant]
     Dosage: 1TAB PER DAY
  26. ADCIRCA [Concomitant]
     Indication: PULMONARY HYPERTENSION
     Dosage: 20MG PER DAY
  27. OMEPRAZOLE [Concomitant]
     Dosage: 40MG PER DAY
  28. METOPROLOL XL [Concomitant]
     Dosage: 50MG AT NIGHT
  29. LOPERAMIDE [Concomitant]
  30. XOPENEX [Concomitant]
     Dosage: .63MG AS REQUIRED
  31. NORCO [Concomitant]
  32. ADVAIR DISKUS [Concomitant]
     Dosage: 1PUFF TWICE PER DAY
     Route: 055
  33. FLUTICASONE [Concomitant]
     Route: 045
  34. FLUOXETINE [Concomitant]
     Dosage: 20MG PER DAY
  35. ALLEGRA-D [Concomitant]
  36. HECTOROL [Concomitant]
     Dosage: .5MCG PER DAY
  37. DOCUSATE [Concomitant]
     Dosage: 100MG AS REQUIRED
  38. CALCIUM + D [Concomitant]
  39. BUMETANIDE [Concomitant]
     Dosage: 2MG TWICE PER DAY
  40. ALPRAZOLAM [Concomitant]
     Dosage: .25MG TWICE PER DAY
  41. ACETAMINOPHEN [Concomitant]
  42. CPAP [Concomitant]
  43. OXYGEN [Concomitant]

REACTIONS (5)
  - Death [Fatal]
  - Flushing [Not Recovered/Not Resolved]
  - Pain in jaw [Not Recovered/Not Resolved]
  - Rash [Unknown]
  - Device related infection [Unknown]
